APPROVED DRUG PRODUCT: VITAMIN A
Active Ingredient: VITAMIN A PALMITATE
Strength: EQ 25,000 UNITS BASE
Dosage Form/Route: CAPSULE;ORAL
Application: A083457 | Product #002
Applicant: MK LABORATORIES INC
Approved: Approved Prior to Jan 1, 1982 | RLD: No | RS: No | Type: DISCN